FAERS Safety Report 8008874 (Version 2)
Quarter: 2012Q4

REPORT INFORMATION
  Report Type: 
  Country: US (occurrence: US)
  Receive Date: 20110624
  Receipt Date: 20120828
  Transmission Date: 20130627
  Serious: Yes (Other)
  Sender: FDA-Public Use
  Company Number: US-US-EMD SERONO, INC.-7065774

PATIENT
  Age: 54 None
  Sex: Male
  Weight: 85 kg

DRUGS (1)
  1. REBIF [Suspect]
     Indication: MULTIPLE SCLEROSIS
     Route: 058
     Dates: start: 20070405

REACTIONS (5)
  - Diabetes mellitus [Not Recovered/Not Resolved]
  - Psoriasis [Recovering/Resolving]
  - Eczema [Recovering/Resolving]
  - Injection site swelling [Unknown]
  - Injection site pain [Unknown]
